FAERS Safety Report 5033792-1 (Version None)
Quarter: 2006Q2

REPORT INFORMATION
  Report Type: 
  Country: None (occurrence: None)
  Receive Date: 20060518
  Receipt Date: 20050627
  Transmission Date: 20061013
  Serious: Yes (Other)
  Sender: FDA-Public Use
  Company Number: 2005089110

PATIENT
  Age: 33 Year
  Sex: Female
  Weight: 63.5036 kg

DRUGS (6)
  1. DEPO-PROVERA [Suspect]
     Indication: CONTRACEPTION
     Dosage: SEE IMAGE
     Dates: start: 19961201, end: 19961201
  2. DEPO-PROVERA [Suspect]
     Indication: MIGRAINE
     Dosage: SEE IMAGE
     Dates: start: 19961201, end: 19961201
  3. DEPO-PROVERA [Suspect]
     Indication: CONTRACEPTION
     Dosage: SEE IMAGE
     Dates: start: 20050501, end: 20050501
  4. DEPO-PROVERA [Suspect]
     Indication: MIGRAINE
     Dosage: SEE IMAGE
     Dates: start: 20050501, end: 20050501
  5. VITAMIN D [Concomitant]
  6. CALCIUM (CALCIUM) [Concomitant]

REACTIONS (5)
  - AMENORRHOEA [None]
  - BLOOD CHOLESTEROL INCREASED [None]
  - OSTEOPENIA [None]
  - OSTEOPOROSIS [None]
  - WEIGHT INCREASED [None]
